FAERS Safety Report 9619271 (Version 1)
Quarter: 2013Q4

REPORT INFORMATION
  Report Type: Spontaneous
  Country: US (occurrence: US)
  Receive Date: 20131014
  Receipt Date: 20131014
  Transmission Date: 20140711
  Serious: No
  Sender: FDA-Public Use
  Company Number: US-009507513-1310USA005748

PATIENT
  Sex: Female

DRUGS (3)
  1. SAPHRIS [Suspect]
     Dosage: 10 MG, BID, RAPID DISSOLVE 10
     Dates: start: 201304, end: 201310
  2. SAPHRIS [Suspect]
     Dosage: DECREASED DOSE, UNSPECIFIED DOSE LOWER THAN 10 MG IN MORNING
     Dates: start: 201310
  3. SAPHRIS [Suspect]
     Dosage: INCREASED DOSE, UNSPECIFIED DOSE HIGHER THAN 10 MG IN EVENING
     Dates: start: 201310

REACTIONS (1)
  - Adverse event [Unknown]
